FAERS Safety Report 15710660 (Version 4)
Quarter: 2019Q1

REPORT INFORMATION
  Report Type: Spontaneous
  Country: US (occurrence: US)
  Receive Date: 20181211
  Receipt Date: 20190306
  Transmission Date: 20190417
  Serious: Yes (Hospitalization, Other)
  Sender: FDA-Public Use
  Company Number: US-DSJP-DSU-2017-137759

PATIENT

DRUGS (4)
  1. BENICAR [Suspect]
     Active Substance: OLMESARTAN MEDOXOMIL
     Dosage: 10 MG, QD
     Dates: start: 20100929
  2. BENICAR [Suspect]
     Active Substance: OLMESARTAN MEDOXOMIL
     Dosage: 20 MG,UNK
     Route: 048
  3. BENICAR HCT [Suspect]
     Active Substance: HYDROCHLOROTHIAZIDE\OLMESARTAN MEDOXOMIL
     Indication: HYPERTENSION
     Dosage: 20-12.5 MG,  QD
     Dates: end: 20080804
  4. BENICAR [Suspect]
     Active Substance: OLMESARTAN MEDOXOMIL
     Indication: HYPERTENSION
     Dosage: 20 MG, QD
     Dates: start: 20080804, end: 20100929

REACTIONS (12)
  - Sprue-like enteropathy [Recovering/Resolving]
  - Colitis ischaemic [Recovering/Resolving]
  - Helicobacter gastritis [Recovered/Resolved]
  - Diverticulum intestinal [Unknown]
  - Haemorrhoids [Not Recovered/Not Resolved]
  - Clostridium difficile colitis [Unknown]
  - Polyp [Unknown]
  - Irritable bowel syndrome [Not Recovered/Not Resolved]
  - Inflammatory bowel disease [Unknown]
  - Gastrooesophageal reflux disease [Not Recovered/Not Resolved]
  - Umbilical hernia [Unknown]
  - Inguinal hernia [Unknown]

NARRATIVE: CASE EVENT DATE: 2008
